FAERS Safety Report 4894800-1 (Version None)
Quarter: 2006Q1

REPORT INFORMATION
  Report Type: 
  Country: None (occurrence: None)
  Receive Date: 20060126
  Receipt Date: 20060126
  Transmission Date: 20060701
  Serious: Yes (Hospitalization)
  Sender: FDA-Public Use
  Company Number: None

PATIENT
  Age: 77 Year
  Sex: Male

DRUGS (11)
  1. HYDROCHLOROTHIAZIDE [Suspect]
     Indication: HYPERTENSION
     Dosage: 25MG  PO  QD
     Route: 048
     Dates: start: 20050726, end: 20050930
  2. FUROSEMIDE [Suspect]
     Indication: OEDEMA PERIPHERAL
     Dosage: 40MG  PO  QD
     Route: 048
     Dates: start: 20050908, end: 20050930
  3. FELODIPINE [Concomitant]
  4. FERROUS SULFATE TAB [Concomitant]
  5. FLUTICASONE PROPIONATE [Concomitant]
  6. SYNTHROID [Concomitant]
  7. METHYLCELLULOSE [Concomitant]
  8. OMEPRAZOLE [Concomitant]
  9. POTASSIUM CHLORIDE [Concomitant]
  10. .. [Concomitant]
  11. POTASSIUM CHLORIDE [Concomitant]

REACTIONS (3)
  - ATRIAL FIBRILLATION [None]
  - HEART RATE INCREASED [None]
  - HYPOKALAEMIA [None]
